FAERS Safety Report 5119855-0 (Version None)
Quarter: 2006Q3

REPORT INFORMATION
  Report Type: 
  Country: None (occurrence: None)
  Receive Date: 20060929
  Receipt Date: 20060915
  Transmission Date: 20061208
  Serious: Yes (Death)
  Sender: FDA-Public Use
  Company Number: 2006S1006546

PATIENT
  Age: 45 Year
  Sex: Male
  Weight: 69.4003 kg

DRUGS (12)
  1. CLOZAPINE [Suspect]
     Indication: AFFECTIVE DISORDER
     Dosage: 50 MG, QHS; PO
     Route: 048
     Dates: start: 20050201
  2. CLOZAPINE [Suspect]
     Indication: PSYCHOTIC DISORDER
     Dosage: 50 MG, QHS; PO
     Route: 048
     Dates: start: 20050201
  3. CLOZAPINE [Suspect]
     Indication: AFFECTIVE DISORDER
     Dosage: 500 MG; QHS; PO
     Route: 048
     Dates: start: 20050201
  4. CLOZAPINE [Suspect]
     Indication: PSYCHOTIC DISORDER
     Dosage: 500 MG; QHS; PO
     Route: 048
     Dates: start: 20050201
  5. GABAPENTIN [Concomitant]
  6. CITALOPRAM [Concomitant]
  7. LITHIUM CARBONATE [Concomitant]
  8. BENZTROPINE MESYLATE [Concomitant]
  9. TRAMADOL HCL [Concomitant]
  10. APAP WITH CODEINE /00012602/ [Concomitant]
  11. DURAGESIC /00070401/ [Concomitant]
  12. LORCET /00607101/ [Concomitant]

REACTIONS (1)
  - CARDIAC FAILURE CONGESTIVE [None]
